FAERS Safety Report 25150169 (Version 1)
Quarter: 2025Q2

REPORT INFORMATION
  Report Type: Report from Study
  Country: US (occurrence: US)
  Receive Date: 20250402
  Receipt Date: 20250402
  Transmission Date: 20250717
  Serious: Yes (Other)
  Sender: VANDA PHARMACEUTICALS
  Company Number: US-JNJFOC-20240521872

PATIENT
  Sex: Female

DRUGS (1)
  1. PONESIMOD [Suspect]
     Active Substance: PONESIMOD
     Indication: Multiple sclerosis
     Route: 048

REACTIONS (1)
  - Macular oedema [Unknown]
